FAERS Safety Report 9684273 (Version 1)
Quarter: 2013Q4

REPORT INFORMATION
  Report Type: Spontaneous
  Country: US (occurrence: US)
  Receive Date: 20131112
  Receipt Date: 20131112
  Transmission Date: 20140711
  Serious: No
  Sender: FDA-Public Use
  Company Number: US-FOUGERA-2013FO000263

PATIENT
  Age: 61 Year
  Sex: Female
  Weight: 77.18 kg

DRUGS (6)
  1. CLOBETASOL PROPIONATE [Suspect]
     Indication: RASH
     Route: 061
  2. DILTIAZEM [Concomitant]
     Indication: HYPERTENSION
     Route: 048
  3. XARELTO [Concomitant]
     Indication: ATRIAL FLUTTER
     Route: 048
  4. FLEXERIL [Concomitant]
     Indication: FIBROMYALGIA
     Route: 048
  5. DITROPAN [Concomitant]
     Indication: HYPERTONIC BLADDER
     Route: 048
  6. TIROSINT [Concomitant]
     Indication: HYPOTHYROIDISM

REACTIONS (3)
  - Condition aggravated [Not Recovered/Not Resolved]
  - Rash [Not Recovered/Not Resolved]
  - Drug ineffective [Not Recovered/Not Resolved]
